FAERS Safety Report 11003848 (Version 1)
Quarter: 2015Q2

REPORT INFORMATION
  Report Type: Spontaneous
  Country: US (occurrence: US)
  Receive Date: 20150409
  Receipt Date: 20150409
  Transmission Date: 20150821
  Serious: Yes (Other)
  Sender: FDA-Public Use
  Company Number: US-CELGENE-USA-2015025091

PATIENT
  Sex: Female

DRUGS (1)
  1. OTEZLA [Suspect]
     Active Substance: APREMILAST
     Indication: PRODUCT USED FOR UNKNOWN INDICATION
     Dosage: 10/20/30 MG?TITRATION
     Route: 048

REACTIONS (6)
  - Pain [Unknown]
  - Condition aggravated [Unknown]
  - Depressed mood [Unknown]
  - Abasia [Unknown]
  - Unevaluable event [Unknown]
  - Arthralgia [Unknown]
